FAERS Safety Report 5735594-7 (Version None)
Quarter: 2008Q2

REPORT INFORMATION
  Report Type: 
  Country: None (occurrence: None)
  Receive Date: 20080512
  Receipt Date: 20080503
  Transmission Date: 20081010
  Serious: Yes (Other)
  Sender: FDA-Public Use
  Company Number: BR-PFIZER INC-2008017548

PATIENT
  Sex: Female

DRUGS (2)
  1. FRONTAL [Suspect]
     Indication: DEPRESSION
     Route: 048
  2. FRONTAL [Suspect]
     Indication: ANXIETY

REACTIONS (1)
  - INTESTINAL DILATATION [None]
